FAERS Safety Report 7221487-5 (Version None)
Quarter: 2011Q1

REPORT INFORMATION
  Report Type: 
  Country: None (occurrence: None)
  Receive Date: 20110112
  Receipt Date: 20110103
  Transmission Date: 20110831
  Serious: Yes (Other)
  Sender: FDA-Public Use
  Company Number: PHHY2010US74365

PATIENT
  Sex: Female

DRUGS (28)
  1. HYDROCODONE [Concomitant]
     Dosage: 7.5/500
  2. ALBUTEROL [Concomitant]
     Dosage: UNK
  3. POTASSIUM [Concomitant]
  4. DARVOCET-N 100 [Concomitant]
     Dosage: 100, FOUR PER DAY
  5. PREDNISONE [Concomitant]
     Dosage: 5 MG IN THE MORNING AND 2 MG IN THE EVENING
  6. MULTI-VITAMIN [Concomitant]
     Dosage: DAILY
  7. METHOTREXATE [Concomitant]
     Dosage: 20 MG EVERY WEDNESDAY
  8. PROVIGIL [Concomitant]
     Dosage: UNK
  9. ORENCIA [Concomitant]
     Dosage: 750 MG EVERY MONTH
  10. LUNESTA [Concomitant]
  11. SYNTHROID [Concomitant]
     Dosage: 0.175 MG, QD
  12. VYTORIN [Concomitant]
     Dosage: 10/40 DAILY
  13. EFFEXOR [Concomitant]
     Dosage: 150 MG, QD
  14. POTASSIUM GLUCONATE TAB [Concomitant]
     Dosage: 5 MG, QD
  15. NITROGLYCERIN [Concomitant]
     Dosage: 0.4 MG, PRN
  16. CALCIUM CITRATE [Concomitant]
     Dosage: 2 TABLETS FOUR TIMES DAILY
  17. VITAMIN D [Concomitant]
     Dosage: 1000 MG, TID
  18. RECLAST [Suspect]
     Indication: OSTEOPOROSIS
     Dosage: UNK
     Dates: start: 20101019
  19. TIZANIDINE HCL [Concomitant]
     Dosage: 4 MG EVERY 3 HOURS
  20. TOPROL-XL [Concomitant]
     Dosage: 100 MG, QD
  21. DENLAFAXINE [Concomitant]
  22. TRICOR [Concomitant]
     Dosage: 145 MG, QD
  23. FISH OIL [Concomitant]
     Dosage: UNK
  24. PREVACID [Concomitant]
     Dosage: 30 MG, BID
  25. ABILIFY [Concomitant]
  26. METOPROLOL [Concomitant]
  27. CALCIUM [Concomitant]
  28. VITAMIN D3 [Concomitant]

REACTIONS (18)
  - LIGAMENT RUPTURE [None]
  - LIVER FUNCTION TEST ABNORMAL [None]
  - LIMB DISCOMFORT [None]
  - MOBILITY DECREASED [None]
  - MUSCLE RUPTURE [None]
  - MUSCLE SPASMS [None]
  - ARTHRALGIA [None]
  - DIZZINESS [None]
  - URTICARIA [None]
  - PAIN IN EXTREMITY [None]
  - OEDEMA PERIPHERAL [None]
  - FEELING COLD [None]
  - EAR INFECTION [None]
  - CHILLS [None]
  - MUSCLE STRAIN [None]
  - PYREXIA [None]
  - NAUSEA [None]
  - BLOOD CREATINE ABNORMAL [None]
